FAERS Safety Report 25162536 (Version 1)
Quarter: 2025Q2

REPORT INFORMATION
  Report Type: Spontaneous
  Country: US (occurrence: US)
  Receive Date: 20250404
  Receipt Date: 20250404
  Transmission Date: 20250717
  Serious: No
  Sender: EYWA PHARMA
  Company Number: US-Eywa Pharma Inc.-2174297

PATIENT

DRUGS (1)
  1. NIACIN [Suspect]
     Active Substance: NIACIN
     Indication: Blood cholesterol increased

REACTIONS (1)
  - Self-medication [Unknown]
